FAERS Safety Report 9010421 (Version 2)
Quarter: 2013Q1

REPORT INFORMATION
  Report Type: Report from Study
  Country: JP (occurrence: JP)
  Receive Date: 20130109
  Receipt Date: 20130213
  Transmission Date: 20140127
  Serious: Yes (Death)
  Sender: FDA-Public Use
  Company Number: JP-ROCHE-1177641

PATIENT
  Sex: Male

DRUGS (8)
  1. METHOXY POLYETHYLENE GLYCOL-EPOETIN BETA [Suspect]
     Indication: NEPHROGENIC ANAEMIA
     Route: 058
     Dates: start: 20111221, end: 20120523
  2. BAYASPIRIN [Concomitant]
     Indication: DIABETIC NEPHROPATHY
     Route: 048
  3. LASIX [Concomitant]
     Indication: DIABETIC NEPHROPATHY
     Route: 048
  4. ALDACTONE A [Concomitant]
     Indication: DIABETIC NEPHROPATHY
     Route: 048
  5. ITOROL [Concomitant]
     Indication: DIABETIC NEPHROPATHY
     Route: 048
  6. MAINTATE [Concomitant]
     Indication: DIABETIC NEPHROPATHY
     Route: 048
  7. CALTAN [Concomitant]
     Indication: DIABETIC NEPHROPATHY
     Route: 048
  8. MICARDIS [Concomitant]
     Indication: DIABETIC NEPHROPATHY
     Route: 048

REACTIONS (1)
  - Sudden death [Fatal]
